FAERS Safety Report 5022330-5 (Version None)
Quarter: 2006Q2

REPORT INFORMATION
  Report Type: 
  Country: None (occurrence: None)
  Receive Date: 20060501
  Receipt Date: 20060123
  Transmission Date: 20061013
  Serious: Yes (Other)
  Sender: FDA-Public Use
  Company Number: 144328USA

PATIENT
  Age: 44 Year
  Sex: Male
  Weight: 146.0582 kg

DRUGS (3)
  1. OXYCODONE HCL [Suspect]
     Dates: start: 20060109, end: 20060110
  2. MIRALAX [Concomitant]
  3. BLOOD PRESSURE MEDICATION NOS [Concomitant]

REACTIONS (4)
  - ANAPHYLACTIC REACTION [None]
  - DYSPNOEA [None]
  - PRURITUS [None]
  - STOMACH DISCOMFORT [None]
